FAERS Safety Report 17043834 (Version 1)
Quarter: 2019Q4

REPORT INFORMATION
  Report Type: Spontaneous
  Country: MX (occurrence: MX)
  Receive Date: 20191118
  Receipt Date: 20191118
  Transmission Date: 20200122
  Serious: Yes (Other)
  Sender: FDA-Public Use
  Company Number: MX-PFIZER INC-2019495943

PATIENT
  Age: 78 Year
  Sex: Female

DRUGS (1)
  1. SUTENT [Suspect]
     Active Substance: SUNITINIB MALATE
     Indication: METASTATIC RENAL CELL CARCINOMA
     Dosage: 37.5 MG, 2/1 SCHEME

REACTIONS (6)
  - Neutropenia [Unknown]
  - Hepatotoxicity [Unknown]
  - Mucosal inflammation [Unknown]
  - Pancytopenia [Unknown]
  - Thrombocytopenia [Unknown]
  - Hypothyroidism [Unknown]
